FAERS Safety Report 19793705 (Version 3)
Quarter: 2025Q3

REPORT INFORMATION
  Report Type: Report from Study
  Country: BR (occurrence: BR)
  Receive Date: 20210906
  Receipt Date: 20250708
  Transmission Date: 20251020
  Serious: Yes (Death, Life-Threatening, Hospitalization)
  Sender: NOVARTIS
  Company Number: BR-NOVARTISPH-NVSC2021BR201113

PATIENT
  Age: 49 Year
  Sex: Male

DRUGS (3)
  1. COSENTYX [Suspect]
     Active Substance: SECUKINUMAB
     Indication: Psoriasis
     Dosage: 300 MG, (2 INJECTIONS OF 150 MG), QW
     Route: 065
     Dates: start: 20210809
  2. COSENTYX [Suspect]
     Active Substance: SECUKINUMAB
     Route: 065
     Dates: start: 20210823
  3. CYCLOSPORINE [Concomitant]
     Active Substance: CYCLOSPORINE
     Indication: Psoriasis
     Route: 065

REACTIONS (17)
  - Multiple organ dysfunction syndrome [Fatal]
  - Cardio-respiratory arrest [Recovering/Resolving]
  - Dyspnoea [Unknown]
  - Swelling [Unknown]
  - Psoriasis [Unknown]
  - Skin exfoliation [Unknown]
  - Skin irritation [Unknown]
  - Sensitive skin [Unknown]
  - Skin fissures [Unknown]
  - Skin discolouration [Unknown]
  - Contusion [Unknown]
  - Infection [Unknown]
  - Alopecia [Unknown]
  - Depressed mood [Unknown]
  - Eating disorder [Unknown]
  - Pain of skin [Unknown]
  - Product dose omission issue [Unknown]

NARRATIVE: CASE EVENT DATE: 20211020
